FAERS Safety Report 24104186 (Version 1)
Quarter: 2024Q3

REPORT INFORMATION
  Report Type: Report from Study
  Country: CO (occurrence: None)
  Receive Date: 20240717
  Receipt Date: 20240717
  Transmission Date: 20241016
  Serious: Yes (Other)
  Sender: ASTRAZENECA
  Company Number: 2020SF46596

PATIENT
  Age: 26329 Day
  Sex: Male

DRUGS (1)
  1. BRILINTA [Suspect]
     Active Substance: TICAGRELOR
     Indication: Acute coronary syndrome
     Route: 048
     Dates: start: 20191205

REACTIONS (2)
  - Prostatic disorder [Not Recovered/Not Resolved]
  - Blood urine [Not Recovered/Not Resolved]

NARRATIVE: CASE EVENT DATE: 20201103
